FAERS Safety Report 9010713 (Version 1)
Quarter: 2013Q1

REPORT INFORMATION
  Report Type: Spontaneous
  Country: US (occurrence: US)
  Receive Date: 20130109
  Receipt Date: 20130109
  Transmission Date: 20140127
  Serious: No
  Sender: FDA-Public Use
  Company Number: US-009507513-1301USA000005

PATIENT
  Age: 32 Year
  Sex: Female

DRUGS (1)
  1. PROPECIA [Suspect]
     Dosage: UNK

REACTIONS (4)
  - Accidental exposure to product [Unknown]
  - Exposure during pregnancy [Unknown]
  - No adverse event [Unknown]
  - Exposure via father [Unknown]
